FAERS Safety Report 14309744 (Version 10)
Quarter: 2020Q3

REPORT INFORMATION
  Report Type: Report from Study
  Country: None (occurrence: AU)
  Receive Date: 20171220
  Receipt Date: 20180228
  Transmission Date: 20201104
  Serious: Yes (Hospitalization)
  Sender: FDA-Public Use
  Company Number: AU-ABBVIE-17P-008-2191432-00

PATIENT
  Age: 72 Year
  Sex: Female
  Weight: 88.1 kg

DRUGS (64)
  1. CYMBALTA [Concomitant]
     Active Substance: DULOXETINE HYDROCHLORIDE
     Indication: FIBROMYALGIA
     Dates: start: 201707
  2. IPRATROPIUM [Concomitant]
     Active Substance: IPRATROPIUM
     Indication: ASTHMA
     Dates: start: 2013
  3. MAXOLON [Concomitant]
     Active Substance: METOCLOPRAMIDE HYDROCHLORIDE
     Indication: NAUSEA
     Dates: start: 20171116
  4. FILGRASTIM [Concomitant]
     Active Substance: FILGRASTIM
     Indication: NEUTROPENIA
     Dates: start: 20171203, end: 20171205
  5. FENTANYL. [Concomitant]
     Active Substance: FENTANYL
     Indication: STOMATITIS
  6. MIDAZOLAM HYDROCHLORIDE. [Concomitant]
     Active Substance: MIDAZOLAM HYDROCHLORIDE
     Indication: SEDATION
     Dates: start: 20171205, end: 20171205
  7. MAGNESIUM SULFATE. [Concomitant]
     Active Substance: MAGNESIUM SULFATE
     Dosage: 20 MMOL IN 100ML NACL
     Dates: start: 20171206, end: 20171206
  8. PROMETHAZINE [Concomitant]
     Active Substance: PROMETHAZINE HYDROCHLORIDE
     Indication: PRURITUS
     Dates: start: 20171201, end: 20171201
  9. LIGNOCAINE VISCOUS [Concomitant]
     Indication: PAIN
  10. OBINUTUZUMAB. [Concomitant]
     Active Substance: OBINUTUZUMAB
     Indication: DIFFUSE LARGE B-CELL LYMPHOMA
     Route: 042
  11. DULOXETINE. [Concomitant]
     Active Substance: DULOXETINE
     Indication: FIBROMYALGIA
     Dates: start: 20171130
  12. BACTRIM [Concomitant]
     Active Substance: SULFAMETHOXAZOLE\TRIMETHOPRIM
     Indication: ANTIFUNGAL PROPHYLAXIS
     Dates: start: 20171116
  13. FENTANYL. [Concomitant]
     Active Substance: FENTANYL
     Indication: SEDATION
     Dates: start: 20171221, end: 20171222
  14. VENETOCLAX. [Suspect]
     Active Substance: VENETOCLAX
     Indication: DIFFUSE LARGE B-CELL LYMPHOMA
     Dosage: 400,600,800 MG ON D1?21 OF 21 D CYCLE: MOST RECENT DOSE (200 MG) ON 05 JAN 2018
     Route: 048
     Dates: start: 20171116
  15. ALLOPURINOL. [Concomitant]
     Active Substance: ALLOPURINOL
     Indication: PROPHYLAXIS
     Dates: start: 20171116
  16. EFORMOTEROL [Concomitant]
     Active Substance: FORMOTEROL
     Indication: ASTHMA
     Dates: start: 201712
  17. LORATADINE. [Concomitant]
     Active Substance: LORATADINE
     Indication: PRURITUS
     Dates: start: 20171219, end: 20171219
  18. PANTOPRAZOLE [Concomitant]
     Active Substance: PANTOPRAZOLE
     Indication: GASTROOESOPHAGEAL REFLUX DISEASE
     Dates: start: 2011
  19. DENOSUMAB (PROLIA) [Concomitant]
     Indication: OSTEOPOROSIS
     Dates: start: 2011
  20. PARACETAMOL [Concomitant]
     Active Substance: ACETAMINOPHEN
     Indication: PAIN
  21. ROSUVASTATIN. [Concomitant]
     Active Substance: ROSUVASTATIN
     Indication: HYPERCHOLESTEROLAEMIA
     Dates: start: 2013
  22. NITROFURANTOIN. [Concomitant]
     Active Substance: NITROFURANTOIN
     Indication: ENTEROCOCCAL INFECTION
     Dates: start: 20171229, end: 20180102
  23. ENTRESTO [Concomitant]
     Active Substance: SACUBITRIL\VALSARTAN
     Indication: CARDIAC FAILURE
     Dates: start: 201612, end: 20171130
  24. OXYCODONE [Concomitant]
     Active Substance: OXYCODONE
     Indication: PAIN
     Dates: start: 20171205, end: 20171205
  25. MAGNESIUM SULFATE. [Concomitant]
     Active Substance: MAGNESIUM SULFATE
     Dates: start: 20171223, end: 20171223
  26. PHENYLEPHRINE [Concomitant]
     Active Substance: PHENYLEPHRINE HYDROCHLORIDE
     Indication: VISUAL IMPAIRMENT
     Dates: start: 20171227, end: 20171227
  27. NORMAL SALINE [Concomitant]
     Active Substance: SODIUM CHLORIDE
     Indication: PRODUCT USED FOR UNKNOWN INDICATION
  28. VALSARTAN. [Concomitant]
     Active Substance: VALSARTAN
     Indication: CARDIOMYOPATHY
     Dates: start: 201612
  29. ASPIRIN. [Concomitant]
     Active Substance: ASPIRIN
     Indication: OSTEOARTHRITIS
     Dates: start: 201612
  30. CRESTOR [Concomitant]
     Active Substance: ROSUVASTATIN CALCIUM
     Indication: HYPERCHOLESTEROLAEMIA
     Dates: start: 2011
  31. BRICANYL TURBUHALER (TERBUTALINE SULFATE) [Concomitant]
     Indication: ASTHMA
     Dates: start: 200712
  32. PACKED RED BLOOD CELLS [Concomitant]
     Active Substance: HUMAN RED BLOOD CELL
     Indication: ANAEMIA
     Dates: start: 20171202, end: 20171202
  33. BACTRIM [Concomitant]
     Active Substance: SULFAMETHOXAZOLE\TRIMETHOPRIM
     Indication: ANTIFUNGAL PROPHYLAXIS
     Dates: start: 20171120
  34. FLUCONAZOLE. [Concomitant]
     Active Substance: FLUCONAZOLE
     Indication: OESOPHAGEAL CANDIDIASIS
     Dates: start: 20171222, end: 20171231
  35. NYSTATIN. [Concomitant]
     Active Substance: NYSTATIN
     Indication: ORAL CANDIDIASIS
     Dates: start: 20171220
  36. BUDESONIDE. [Concomitant]
     Active Substance: BUDESONIDE
     Indication: ASTHMA
     Dates: start: 201712
  37. ENOXAPARIN [Concomitant]
     Active Substance: ENOXAPARIN
     Indication: THROMBOSIS PROPHYLAXIS
     Dates: start: 20171115, end: 20171116
  38. FILGRASTIM [Concomitant]
     Active Substance: FILGRASTIM
     Dates: start: 20171220, end: 20171224
  39. POTASSIUM CHLORIDE. [Concomitant]
     Active Substance: POTASSIUM CHLORIDE
     Indication: HYPOKALAEMIA
     Dosage: 40 MMOL IN 1000ML NACL
     Dates: start: 20171219, end: 20171219
  40. RAMIPRIL. [Concomitant]
     Active Substance: RAMIPRIL
     Indication: HYPERTENSION
     Dates: start: 20180129
  41. RITUXIMAB. [Suspect]
     Active Substance: RITUXIMAB
     Indication: DIFFUSE LARGE B-CELL LYMPHOMA
     Dosage: MOST RECENT DOSE (710MG) ON 05 JAN 2018
     Route: 042
     Dates: start: 20171116
  42. TRAMADOL. [Concomitant]
     Active Substance: TRAMADOL
     Indication: PAIN
     Dates: start: 20170928, end: 201711
  43. PACKED RED BLOOD CELLS [Concomitant]
     Active Substance: HUMAN RED BLOOD CELL
     Dates: start: 20171220, end: 20171220
  44. CEPHALEXIN. [Concomitant]
     Active Substance: CEPHALEXIN
     Indication: RESPIRATORY TRACT INFECTION
     Dates: start: 20171213, end: 20171218
  45. ENTRESTO [Concomitant]
     Active Substance: SACUBITRIL\VALSARTAN
     Dates: start: 20180103
  46. HEPARIN [Concomitant]
     Active Substance: HEPARIN SODIUM
     Indication: THROMBOSIS PROPHYLAXIS
     Dates: start: 20171115, end: 20171116
  47. MAGNESIUM SULFATE. [Concomitant]
     Active Substance: MAGNESIUM SULFATE
     Indication: HYPOMAGNESAEMIA
     Dosage: 10 MMOL IN 100ML NACL
     Dates: start: 20171130, end: 20171201
  48. MAGNESIUM SULFATE. [Concomitant]
     Active Substance: MAGNESIUM SULFATE
     Dosage: 10 MMOL IN 100ML NACL
     Dates: start: 20171218, end: 20171219
  49. LORATADINE. [Concomitant]
     Active Substance: LORATADINE
     Indication: RASH
  50. BISOPROLOL [Concomitant]
     Active Substance: BISOPROLOL
     Indication: HYPERTENSION
     Dates: start: 20180129
  51. POLATUZUMAB VEDOTIN. [Suspect]
     Active Substance: POLATUZUMAB VEDOTIN
     Indication: DIFFUSE LARGE B-CELL LYMPHOMA
     Dosage: MOST RECENT DOSE (139MG) ON 14/JAN/2018
     Route: 042
     Dates: start: 20171116
  52. NEBIVOLOL. [Concomitant]
     Active Substance: NEBIVOLOL
     Indication: HYPERTENSION
     Route: 065
     Dates: start: 201702
  53. RIVAROXABAN [Concomitant]
     Active Substance: RIVAROXABAN
     Indication: ANTICOAGULANT THERAPY
     Dates: start: 20141029
  54. CRESTOR [Concomitant]
     Active Substance: ROSUVASTATIN CALCIUM
     Indication: GASTROOESOPHAGEAL REFLUX DISEASE
     Dates: start: 2014
  55. OXAZEPAM. [Concomitant]
     Active Substance: OXAZEPAM
     Indication: ANXIETY
     Dates: start: 1993
  56. ANGININE [Concomitant]
     Indication: ANGINA PECTORIS
     Dates: start: 201612
  57. NEO?B12 (HYDROXOCOBALAMIN) [Concomitant]
     Indication: ASTHMA
     Dates: start: 1994
  58. SODIUM BICARBONATE. [Concomitant]
     Active Substance: SODIUM BICARBONATE
     Indication: PRODUCT USED FOR UNKNOWN INDICATION
     Dates: start: 20171116
  59. LOPERAMIDE [Concomitant]
     Active Substance: LOPERAMIDE
     Indication: DIARRHOEA
     Dates: start: 20171116
  60. CIPROFLOXACIN. [Concomitant]
     Active Substance: CIPROFLOXACIN
     Indication: URINARY TRACT INFECTION
     Dates: start: 20171203, end: 20171204
  61. FENTANYL. [Concomitant]
     Active Substance: FENTANYL
     Indication: STOMATITIS
     Dates: start: 20171205, end: 20171205
  62. TROPICAMIDE. [Concomitant]
     Active Substance: TROPICAMIDE
     Indication: VISUAL IMPAIRMENT
     Dates: start: 20171227, end: 20171227
  63. ONDANSETRON [Concomitant]
     Active Substance: ONDANSETRON
     Indication: NAUSEA
     Dates: start: 20171219, end: 20171219
  64. LIGNOCAINE VISCOUS [Concomitant]
     Indication: STOMATITIS
     Dates: start: 20171219, end: 20171219

REACTIONS (6)
  - Fluid overload [Recovered/Resolved]
  - Hypoxia [Recovered/Resolved]
  - Acute kidney injury [Recovered/Resolved]
  - Dyspnoea [Recovered/Resolved]
  - Mucosal inflammation [Recovering/Resolving]
  - Hypotension [Not Recovered/Not Resolved]

NARRATIVE: CASE EVENT DATE: 20171210
